FAERS Safety Report 23065050 (Version 3)
Quarter: 2023Q4

REPORT INFORMATION
  Report Type: Spontaneous
  Country: CH (occurrence: CH)
  Receive Date: 20231013
  Receipt Date: 20231022
  Transmission Date: 20240110
  Serious: No
  Sender: FDA-Public Use
  Company Number: CH-ABBVIE-5446863

PATIENT
  Sex: Female
  Weight: 47 kg

DRUGS (1)
  1. RINVOQ [Suspect]
     Active Substance: UPADACITINIB
     Indication: Rheumatoid arthritis
     Dosage: PER DAY ONE TABLET
     Route: 048
     Dates: start: 20130918

REACTIONS (1)
  - Product residue present [Unknown]
